FAERS Safety Report 24789651 (Version 1)
Quarter: 2024Q4

REPORT INFORMATION
  Report Type: Spontaneous
  Country: US (occurrence: None)
  Receive Date: 20241229
  Receipt Date: 20241229
  Transmission Date: 20250115
  Serious: Yes (Other)
  Sender: Public
  Company Number: None

PATIENT
  Age: 77 Year
  Sex: Male
  Weight: 76.5 kg

DRUGS (9)
  1. PAXLOVID [Suspect]
     Active Substance: NIRMATRELVIR\RITONAVIR
     Indication: SARS-CoV-2 test positive
     Dosage: 3 CAPSULES TWICE A DAY ORAL
     Route: 048
     Dates: start: 20241224, end: 20241227
  2. ATORVASTATIN [Suspect]
     Active Substance: ATORVASTATIN
  3. TAMSULOSIN [Suspect]
     Active Substance: TAMSULOSIN
  4. ASPIRIN [Suspect]
     Active Substance: ASPIRIN
  5. IBUPROFEN [Suspect]
     Active Substance: IBUPROFEN
  6. AMLODIPINE [Concomitant]
     Active Substance: AMLODIPINE BESYLATE
  7. FINASTERIDE [Concomitant]
     Active Substance: FINASTERIDE
  8. VITAMINS [Concomitant]
     Active Substance: VITAMINS
  9. ASPIRIN [Concomitant]
     Active Substance: ASPIRIN

REACTIONS (3)
  - Blood urine present [None]
  - Liver injury [None]
  - Contraindicated product administered [None]

NARRATIVE: CASE EVENT DATE: 20241225
